FAERS Safety Report 5642205-8 (Version None)
Quarter: 2008Q1

REPORT INFORMATION
  Report Type: 
  Country: None (occurrence: None)
  Receive Date: 20080225
  Receipt Date: 20080213
  Transmission Date: 20080703
  Serious: Yes (Hospitalization)
  Sender: FDA-Public Use
  Company Number: PHO-2007-055 F-UP # 1

PATIENT
  Age: 66 Year
  Sex: Male

DRUGS (9)
  1. PHOTOFRIN [Suspect]
     Indication: DYSPLASIA
     Dosage: 152 MG,1X,IV
     Route: 042
     Dates: start: 20061202
  2. ASPIRIN (ASA) (ENTERIC COATED) [Concomitant]
  3. BISOPROLOL/HYDROCHLORATHIOZIDE [Concomitant]
  4. GABAPENTIN [Concomitant]
  5. NEXIUM (ESOMEPRAZOLE MAGNESIUM TRIHYDRATE) [Concomitant]
  6. REQUIP [Concomitant]
  7. ASCORBIC ACID [Concomitant]
  8. UROXATRAL (ALFUZOSIN HCL) [Concomitant]
  9. COENZYMEC [Concomitant]

REACTIONS (4)
  - CHEST PAIN [None]
  - DYSPHONIA [None]
  - FLATULENCE [None]
  - SUNBURN [None]
